FAERS Safety Report 16152008 (Version 1)
Quarter: 2019Q2

REPORT INFORMATION
  Report Type: Spontaneous
  Country: FR (occurrence: FR)
  Receive Date: 20190403
  Receipt Date: 20190403
  Transmission Date: 20190711
  Serious: Yes (Other)
  Sender: FDA-Public Use
  Company Number: FR-ACCORD-117151

PATIENT
  Age: 82 Year
  Sex: Male
  Weight: 87 kg

DRUGS (10)
  1. CALCIPARINE [Suspect]
     Active Substance: HEPARIN CALCIUM
     Indication: PROPHYLAXIS
     Route: 058
     Dates: start: 20190109
  2. TAZOCILLINE [Suspect]
     Active Substance: PIPERACILLIN SODIUM\TAZOBACTAM SODIUM
     Indication: INFECTION
     Route: 048
     Dates: start: 20181228
  3. INDAPAMIDE. [Concomitant]
     Active Substance: INDAPAMIDE
  4. KARDEGIC [Concomitant]
     Active Substance: ASPIRIN DL-LYSINE
     Dosage: 75 MG, POWDER FOR ORAL SOLUTION IN SACHET-DOSE
  5. PARACETAMOL [Concomitant]
     Active Substance: ACETAMINOPHEN
  6. OMEXEL L.P [Concomitant]
     Dosage: 0,4 MG, EXTENDED-RELEASE FILM-COATED TABLET
  7. EZETIMIBE/SIMVASTATIN [Concomitant]
     Dosage: 10 MG/40 MG,TABLET
  8. RAMIPRIL. [Concomitant]
     Active Substance: RAMIPRIL
  9. AMLODIPINE [Suspect]
     Active Substance: AMLODIPINE BESYLATE
     Indication: HYPERTENSION
     Route: 048
     Dates: end: 20190111
  10. AMIODARONE [Concomitant]
     Active Substance: AMIODARONE

REACTIONS (2)
  - Generalised erythema [Recovered/Resolved]
  - Pruritus [Recovered/Resolved]

NARRATIVE: CASE EVENT DATE: 20190111
